FAERS Safety Report 20774930 (Version 1)
Quarter: 2022Q2

REPORT INFORMATION
  Report Type: Spontaneous
  Country: CN (occurrence: CN)
  Receive Date: 20220502
  Receipt Date: 20220502
  Transmission Date: 20220721
  Serious: Yes (Hospitalization, Other)
  Sender: FDA-Public Use
  Company Number: CN-PFIZER INC-202101301994

PATIENT
  Age: 78 Year
  Sex: Female
  Weight: 45 kg

DRUGS (4)
  1. LYRICA [Suspect]
     Active Substance: PREGABALIN
     Indication: Post herpetic neuralgia
     Dosage: 75 MG (BEFORE GOING TO BED)
     Route: 048
     Dates: start: 20190225
  2. LYRICA [Suspect]
     Active Substance: PREGABALIN
     Dosage: 75 MG, 2X/DAY
     Route: 048
     Dates: start: 20190325, end: 20190326
  3. NEDAPLATIN [Suspect]
     Active Substance: NEDAPLATIN
     Indication: Post herpetic neuralgia
     Dosage: 1 DF (BEFORE GOING TO BED)
     Route: 048
     Dates: start: 20190225
  4. NEDAPLATIN [Suspect]
     Active Substance: NEDAPLATIN
     Dosage: 1 DF, 2X/DAY
     Route: 048
     Dates: start: 20190325, end: 20190326

REACTIONS (6)
  - Dizziness [Recovering/Resolving]
  - Vertebrobasilar insufficiency [Unknown]
  - Nausea [Recovered/Resolved]
  - Vomiting [Recovered/Resolved]
  - Dysstasia [Recovering/Resolving]
  - Pain [Recovering/Resolving]

NARRATIVE: CASE EVENT DATE: 20190226
